FAERS Safety Report 9565837 (Version 1)
Quarter: 2013Q3

REPORT INFORMATION
  Report Type: Spontaneous
  Country: DE (occurrence: FR)
  Receive Date: 20130930
  Receipt Date: 20130930
  Transmission Date: 20140515
  Serious: Yes (Hospitalization)
  Sender: FDA-Public Use
  Company Number: FR-FRI-1000049175

PATIENT
  Age: 88 Year
  Sex: Female

DRUGS (8)
  1. MEMANTINE [Suspect]
     Indication: DEMENTIA ALZHEIMER^S TYPE
     Dosage: 1 DF
     Route: 048
     Dates: end: 20120407
  2. PAROXETINE [Suspect]
     Indication: DEPRESSION
     Dosage: 20 MG
     Dates: start: 20120330, end: 20120407
  3. PREVISCAN (FLUINDIONE) [Concomitant]
     Dosage: 0.25 DF
     Route: 048
  4. FUROSEMIDE [Concomitant]
  5. IMOVANE [Concomitant]
  6. KALEORID [Concomitant]
  7. SERESTA [Concomitant]
  8. CORDARONE [Concomitant]

REACTIONS (1)
  - Psychomotor skills impaired [Recovered/Resolved]
